FAERS Safety Report 15622162 (Version 1)
Quarter: 2018Q4

REPORT INFORMATION
  Report Type: Spontaneous
  Country: DE (occurrence: DE)
  Receive Date: 20181115
  Receipt Date: 20181115
  Transmission Date: 20190205
  Serious: Yes (Other)
  Sender: FDA-Public Use
  Company Number: DE-SA-2018SA085724

PATIENT
  Age: 62 Year
  Sex: Male
  Weight: 81 kg

DRUGS (8)
  1. AMIODARONE HYDROCHLORIDE. [Suspect]
     Active Substance: AMIODARONE HYDROCHLORIDE
     Dosage: UNK UNK,UNK
     Route: 048
     Dates: start: 201602, end: 201802
  2. TORASEMID [Concomitant]
     Active Substance: TORSEMIDE
  3. PANTOPRAZOLE [Concomitant]
     Active Substance: PANTOPRAZOLE
  4. RAMIPRIL. [Concomitant]
     Active Substance: RAMIPRIL
  5. CLOPIDOGREL BISULFATE. [Suspect]
     Active Substance: CLOPIDOGREL BISULFATE
     Dosage: UNK, UNK
     Route: 048
  6. METOPROLOL SUCCINATE. [Suspect]
     Active Substance: METOPROLOL SUCCINATE
     Dosage: UNK UNK, UNK
     Route: 065
  7. PRADAXA [Suspect]
     Active Substance: DABIGATRAN ETEXILATE MESYLATE
     Dosage: UNK, UNK
     Route: 065
     Dates: start: 201712
  8. EPLERENON RATIOPHARM [Concomitant]

REACTIONS (13)
  - Paraesthesia [Unknown]
  - Hallucination [Unknown]
  - Pain in extremity [Unknown]
  - Coordination abnormal [Unknown]
  - Retching [Unknown]
  - Fatigue [Unknown]
  - Tinnitus [Unknown]
  - Gait disturbance [Unknown]
  - Renal pain [Unknown]
  - Asthenia [Unknown]
  - Back pain [Unknown]
  - Hypoaesthesia [Unknown]
  - Dizziness [Unknown]
